FAERS Safety Report 5708563-0 (Version None)
Quarter: 2008Q2

REPORT INFORMATION
  Report Type: 
  Country: None (occurrence: None)
  Receive Date: 20080417
  Receipt Date: 20080407
  Transmission Date: 20081010
  Serious: Yes (Life-Threatening, Hospitalization, Other)
  Sender: FDA-Public Use
  Company Number: US-PFIZER INC-2008031223

PATIENT
  Age: 17 Year
  Sex: Female

DRUGS (3)
  1. ATORVASTATIN [Suspect]
     Indication: DRUG USE FOR UNKNOWN INDICATION
  2. ENALAPRIL MALEATE [Concomitant]
  3. ORAL CONTRACEPTIVE NOS [Concomitant]
     Route: 048

REACTIONS (11)
  - ANOGENITAL WARTS [None]
  - ANTINUCLEAR ANTIBODY POSITIVE [None]
  - INTERCOSTAL NEURALGIA [None]
  - MYALGIA [None]
  - OEDEMA PERIPHERAL [None]
  - PLEURAL EFFUSION [None]
  - PULMONARY EMBOLISM [None]
  - PULMONARY INFARCTION [None]
  - RENAL HAEMATOMA [None]
  - RENAL VEIN THROMBOSIS [None]
  - RIGHT VENTRICULAR HYPERTROPHY [None]
